FAERS Safety Report 22535874 (Version 3)
Quarter: 2024Q2

REPORT INFORMATION
  Report Type: Report from Study
  Country: IL (occurrence: IL)
  Receive Date: 20230608
  Receipt Date: 20240516
  Transmission Date: 20240715
  Serious: Yes (Other)
  Sender: FDA-Public Use
  Company Number: IL-002147023-NVSC2022IL059310

PATIENT
  Age: 22 Year
  Sex: Female
  Weight: 63 kg

DRUGS (9)
  1. TAFINLAR [Suspect]
     Active Substance: DABRAFENIB MESYLATE
     Indication: Langerhans^ cell histiocytosis
     Dosage: 150 MG, BID (TOTAL 300 MG)
     Route: 048
     Dates: start: 20210818
  2. TAFINLAR [Suspect]
     Active Substance: DABRAFENIB MESYLATE
     Dosage: 250 MG (100 MG MORNING 150 MG EVENING)
     Route: 065
     Dates: start: 202110
  3. TAFINLAR [Suspect]
     Active Substance: DABRAFENIB MESYLATE
     Dosage: 250 MG, QD (100 MG MORNING DOSE) (150 MG AT EVENING)
     Route: 065
     Dates: start: 20211201
  4. TAFINLAR [Suspect]
     Active Substance: DABRAFENIB MESYLATE
     Dosage: 225 MG (75 MG MORNING 150 MG)
     Route: 065
     Dates: start: 202201
  5. TAFINLAR [Suspect]
     Active Substance: DABRAFENIB MESYLATE
     Dosage: 225 MG, QD (150 MG MORNING DOSE) AND 75 MG EVENING DOSE)
     Route: 065
     Dates: start: 20220828
  6. TAFINLAR [Suspect]
     Active Substance: DABRAFENIB MESYLATE
     Dosage: 75 MG, BID
     Route: 065
     Dates: start: 202302
  7. TAFINLAR [Suspect]
     Active Substance: DABRAFENIB MESYLATE
     Dosage: 225 MG (150 MG MORNING DOSE) AND 75 MG EVENING DOSE)
     Route: 065
     Dates: start: 20230226
  8. TAFINLAR [Suspect]
     Active Substance: DABRAFENIB MESYLATE
     Dosage: 150 MG
     Route: 065
     Dates: start: 20230511
  9. TAFINLAR [Suspect]
     Active Substance: DABRAFENIB MESYLATE
     Dosage: 225 MG (150 + 75)
     Route: 065
     Dates: start: 20230928

REACTIONS (8)
  - Cataract [Recovering/Resolving]
  - Langerhans^ cell histiocytosis [Unknown]
  - Disease recurrence [Unknown]
  - Dermal cyst [Recovered/Resolved]
  - Skin reaction [Unknown]
  - Asthenia [Unknown]
  - Burning feet syndrome [Unknown]
  - Fatigue [Unknown]

NARRATIVE: CASE EVENT DATE: 20211130
